FAERS Safety Report 10516506 (Version 1)
Quarter: 2014Q4

REPORT INFORMATION
  Report Type: Spontaneous
  Country: DK (occurrence: DK)
  Receive Date: 20141014
  Receipt Date: 20141014
  Transmission Date: 20150528
  Serious: Yes (Hospitalization)
  Sender: FDA-Public Use
  Company Number: DK-TEVA-514306ISR

PATIENT
  Age: 76 Year
  Sex: Female
  Weight: 70 kg

DRUGS (1)
  1. ALENDRONAT [Suspect]
     Active Substance: ALENDRONATE SODIUM
     Indication: OSTEOPOROSIS
     Dosage: STRENGTH: 70 MG
     Route: 048
     Dates: start: 20140721, end: 20140825

REACTIONS (2)
  - Intra-abdominal haemorrhage [Recovered/Resolved with Sequelae]
  - Surgery [Recovered/Resolved]

NARRATIVE: CASE EVENT DATE: 201408
